FAERS Safety Report 11595774 (Version 2)
Quarter: 2015Q4

REPORT INFORMATION
  Report Type: Spontaneous
  Country: JP (occurrence: JP)
  Receive Date: 20151006
  Receipt Date: 20151029
  Transmission Date: 20160304
  Serious: Yes (Other)
  Sender: FDA-Public Use
  Company Number: PHJP2015JP016679

PATIENT
  Age: 51 Year
  Sex: Male

DRUGS (8)
  1. STALEVO [Suspect]
     Active Substance: CARBIDOPA\ENTACAPONE\LEVODOPA
     Indication: PARKINSON^S DISEASE
     Dosage: 1 DF (ENTACAPONE 100 MG/ LEVODOPA 100 MG/ CARBIDOPA 10 MG), BID
     Route: 048
  2. SYMMETREL [Suspect]
     Active Substance: AMANTADINE HYDROCHLORIDE
     Indication: PARKINSON^S DISEASE
     Dosage: 100 MG, BID
     Route: 048
  3. FP [Concomitant]
     Active Substance: SELEGILINE HYDROCHLORIDE
     Indication: PARKINSON^S DISEASE
     Dosage: 7.5 MG, QD
     Route: 065
  4. FP [Concomitant]
     Active Substance: SELEGILINE HYDROCHLORIDE
     Dosage: 10 MG, QD
     Route: 065
  5. STALEVO [Suspect]
     Active Substance: CARBIDOPA\ENTACAPONE\LEVODOPA
     Dosage: 1 DF (ENTACAPONE 100 MG/ LEVODOPA 100 MG/ CARBIDOPA 10 MG), TID
     Route: 048
  6. TRERIEF [Concomitant]
     Active Substance: ZONISAMIDE
     Indication: PARKINSON^S DISEASE
     Dosage: 50 MG, QD
     Route: 065
  7. PERMAX [Concomitant]
     Active Substance: PERGOLIDE
     Indication: PARKINSON^S DISEASE
     Dosage: 250 UG, TID
     Route: 065
  8. MENESIT [Concomitant]
     Active Substance: CARBIDOPA\LEVODOPA
     Indication: PARKINSON^S DISEASE
     Dosage: 50 MG, QD
     Route: 065

REACTIONS (5)
  - Gait disturbance [Unknown]
  - Hand fracture [Recovered/Resolved]
  - Fall [Recovered/Resolved]
  - Dyskinesia [Recovering/Resolving]
  - Parkinson^s disease [Recovering/Resolving]

NARRATIVE: CASE EVENT DATE: 2009
